FAERS Safety Report 12407539 (Version 3)
Quarter: 2016Q2

REPORT INFORMATION
  Report Type: Spontaneous
  Country: IT (occurrence: IT)
  Receive Date: 20160526
  Receipt Date: 20160629
  Transmission Date: 20160815
  Serious: Yes (Other)
  Sender: FDA-Public Use
  Company Number: PHHY2016IT070550

PATIENT
  Age: 70 Year
  Sex: Female

DRUGS (4)
  1. EUTIROX [Concomitant]
     Active Substance: LEVOTHYROXINE SODIUM
     Dosage: 150 UG, QW2 (FOR 2 DAYS/WEEK)
     Route: 048
  2. VOTRIENT [Suspect]
     Active Substance: PAZOPANIB HYDROCHLORIDE
     Dosage: 400 MG, QD (RESTARTED ON 21 DAY)
     Route: 048
     Dates: end: 20150920
  3. EUTIROX [Concomitant]
     Active Substance: LEVOTHYROXINE SODIUM
     Indication: PRODUCT USED FOR UNKNOWN INDICATION
     Dosage: 100 UG, QW5 (5 DAYS A WEEK))
     Route: 048
  4. VOTRIENT [Suspect]
     Active Substance: PAZOPANIB HYDROCHLORIDE
     Indication: RENAL CANCER METASTATIC
     Dosage: 400 MG, QD (FROM DAY 1 TO DAY 14)
     Route: 048
     Dates: start: 20141118

REACTIONS (5)
  - Supraventricular extrasystoles [Recovering/Resolving]
  - Bradycardia [Unknown]
  - Ventricular extrasystoles [Recovering/Resolving]
  - Presyncope [Recovering/Resolving]
  - Hypotension [Unknown]

NARRATIVE: CASE EVENT DATE: 20150813
